FAERS Safety Report 20170403 (Version 1)
Quarter: 2021Q4

REPORT INFORMATION
  Report Type: Spontaneous
  Country: US (occurrence: None)
  Receive Date: 20211209
  Receipt Date: 20211209
  Transmission Date: 20220303
  Serious: No
  Sender: FDA-Public Use
  Company Number: None

PATIENT
  Sex: Female

DRUGS (4)
  1. VERZENIO [Suspect]
     Active Substance: ABEMACICLIB
     Indication: Breast cancer female
     Dosage: FREQUENCY : TWICE A DAY;?
     Route: 048
     Dates: start: 202103
  2. VERZENIO [Suspect]
     Active Substance: ABEMACICLIB
     Indication: Bone cancer
  3. VERZENIO [Suspect]
     Active Substance: ABEMACICLIB
     Indication: Breast cancer female
  4. VERZENIO [Suspect]
     Active Substance: ABEMACICLIB
     Indication: Malignant histiocytosis

REACTIONS (1)
  - Drug ineffective [None]
